FAERS Safety Report 21782424 (Version 1)
Quarter: 2022Q4

REPORT INFORMATION
  Report Type: Report from Study
  Country: FR (occurrence: FR)
  Receive Date: 20221227
  Receipt Date: 20221227
  Transmission Date: 20230112
  Serious: Yes (Hospitalization)
  Sender: FDA-Public Use
  Company Number: FR-SA-SAC20221222000869

PATIENT
  Age: 67 Year
  Sex: Male
  Weight: 88 kg

DRUGS (8)
  1. ISATUXIMAB [Suspect]
     Active Substance: ISATUXIMAB
     Indication: Plasma cell myeloma
     Dosage: 900 MG, QD
     Route: 065
     Dates: start: 20220531, end: 20220531
  2. ISATUXIMAB [Suspect]
     Active Substance: ISATUXIMAB
     Dosage: 900 MG, QD
     Dates: start: 20221214, end: 20221214
  3. LENALIDOMIDE [Suspect]
     Active Substance: LENALIDOMIDE
     Indication: Plasma cell myeloma
     Dosage: 25 MG, QD
     Dates: start: 20220531, end: 20220531
  4. LENALIDOMIDE [Suspect]
     Active Substance: LENALIDOMIDE
     Dosage: 25 MG, QD
     Dates: start: 20221214, end: 20221214
  5. BORTEZOMIB [Suspect]
     Active Substance: BORTEZOMIB
     Indication: Plasma cell myeloma
     Dosage: 2.5 MG, QD
     Dates: start: 20220531, end: 20220531
  6. BORTEZOMIB [Suspect]
     Active Substance: BORTEZOMIB
     Dosage: 2.5 MG, QD
     Dates: start: 20221214, end: 20221214
  7. DEXAMETHASONE [Suspect]
     Active Substance: DEXAMETHASONE
     Indication: Plasma cell myeloma
     Dosage: 20 MG, QD
     Dates: start: 20220531, end: 20220531
  8. DEXAMETHASONE [Suspect]
     Active Substance: DEXAMETHASONE
     Dosage: 20 MG, QD
     Dates: start: 20221214, end: 20221214

REACTIONS (1)
  - Erysipelas [Recovering/Resolving]

NARRATIVE: CASE EVENT DATE: 20221214
